FAERS Safety Report 12273711 (Version 3)
Quarter: 2016Q2

REPORT INFORMATION
  Report Type: Report from Study
  Country: US (occurrence: US)
  Receive Date: 20160415
  Receipt Date: 20160520
  Transmission Date: 20160815
  Serious: Yes (Death, Other)
  Sender: FDA-Public Use
  Company Number: US-GILEAD-2016-0208634

PATIENT
  Age: 93 Year
  Sex: Female

DRUGS (1)
  1. AMBRISENTAN [Suspect]
     Active Substance: AMBRISENTAN
     Indication: PULMONARY HYPERTENSION
     Dosage: 10 MG, QD
     Route: 065
     Dates: start: 20151125, end: 20160323

REACTIONS (3)
  - Pulmonary embolism [Not Recovered/Not Resolved]
  - Renal failure [Not Recovered/Not Resolved]
  - Right ventricular failure [Fatal]
